FAERS Safety Report 15363194 (Version 2)
Quarter: 2018Q4

REPORT INFORMATION
  Report Type: Spontaneous
  Country: JP (occurrence: JP)
  Receive Date: 20180907
  Receipt Date: 20181012
  Transmission Date: 20190204
  Serious: No
  Sender: FDA-Public Use
  Company Number: PHJP2018JP015851

PATIENT
  Age: 67 Year
  Sex: Female

DRUGS (10)
  1. LAMISIL [Suspect]
     Active Substance: TERBINAFINE HYDROCHLORIDE
     Indication: TINEA PEDIS
     Dosage: 125 MG, QD
     Route: 048
     Dates: start: 20180402, end: 20180408
  2. HEPARINOID [Concomitant]
     Active Substance: CHONDROITIN SULFATE (BOVINE)
     Indication: RASH PRURITIC
     Dosage: UNK
     Route: 065
     Dates: start: 201801
  3. LAMISIL [Suspect]
     Active Substance: TERBINAFINE HYDROCHLORIDE
     Dosage: 125 MG, UNK
     Route: 048
     Dates: start: 20180411, end: 20180427
  4. METHYLROSANILINIUM CHLORIDE [Concomitant]
     Indication: TINEA PEDIS
     Dosage: UNK
     Route: 065
     Dates: start: 20180402
  5. RINDERON VG [Concomitant]
     Active Substance: BETAMETHASONE VALERATE\GENTAMICIN SULFATE
     Indication: RASH PRURITIC
     Dosage: UNK
     Route: 065
     Dates: start: 201801
  6. CELESTAMINE [Concomitant]
     Active Substance: BETAMETHASONE\DEXCHLORPHENIRAMINE MALEATE
     Indication: ECZEMA
     Dosage: 1 DF, TID
     Route: 048
     Dates: start: 20180402, end: 20180426
  7. ANTEBATE [Concomitant]
     Active Substance: BETAMETHASONE DIPROPIONATE
     Indication: ECZEMA
     Dosage: 20 G, APPLY TWO TO THREE TIMES
     Route: 061
     Dates: start: 20180402, end: 20180410
  8. ZINC OXIDE. [Concomitant]
     Active Substance: ZINC OXIDE
     Indication: TINEA PEDIS
     Dosage: UNK
     Route: 061
     Dates: start: 20180402
  9. MYSER (DIFLUPREDNATE) [Concomitant]
     Active Substance: DIFLUPREDNATE
     Indication: RASH PRURITIC
     Dosage: UNK
     Route: 065
     Dates: start: 201801
  10. NIZORAL [Concomitant]
     Active Substance: KETOCONAZOLE
     Indication: TINEA PEDIS
     Dosage: 10 G, QD
     Route: 061
     Dates: start: 20180402, end: 20180410

REACTIONS (1)
  - Hepatic function abnormal [Unknown]

NARRATIVE: CASE EVENT DATE: 20180427
